FAERS Safety Report 7980956-0 (Version None)
Quarter: 2011Q4

REPORT INFORMATION
  Report Type: 
  Country: None (occurrence: None)
  Receive Date: 20111215
  Receipt Date: 20111207
  Transmission Date: 20120403
  Serious: Yes (Hospitalization, Other)
  Sender: FDA-Public Use
  Company Number: US-BIOGENIDEC-203489

PATIENT
  Sex: Female
  Weight: 63 kg

DRUGS (3)
  1. AVONEX [Suspect]
     Indication: MULTIPLE SCLEROSIS
     Route: 030
     Dates: start: 19990101, end: 20030101
  2. AVONEX [Suspect]
     Route: 030
     Dates: start: 20030101
  3. DILANTIN [Concomitant]
     Indication: CONVULSION
     Dates: start: 19850101

REACTIONS (13)
  - AMNESIA [None]
  - SUICIDAL IDEATION [None]
  - CONVULSION [None]
  - MULTIPLE SCLEROSIS RELAPSE [None]
  - CONCUSSION [None]
  - STRESS [None]
  - LACERATION [None]
  - HAND FRACTURE [None]
  - INFECTED BITES [None]
  - PARTIAL SEIZURES [None]
  - ANIMAL BITE [None]
  - FALL [None]
  - DEPRESSION [None]
